FAERS Safety Report 12821806 (Version 6)
Quarter: 2017Q2

REPORT INFORMATION
  Report Type: Report from Study
  Country: JP (occurrence: JP)
  Receive Date: 20161007
  Receipt Date: 20170510
  Transmission Date: 20170830
  Serious: Yes (Death, Hospitalization, Other)
  Sender: FDA-Public Use
  Company Number: JP-BAXTER-2016BAX050399

PATIENT
  Age: 73 Year
  Sex: Male

DRUGS (11)
  1. ENDOXAN 1G [Suspect]
     Active Substance: CYCLOPHOSPHAMIDE
     Indication: MARGINAL ZONE LYMPHOMA
     Dosage: ON DAY-2 OF CYCLE 1 TO 6 (CYCLE: 21 DAYS)
     Route: 042
     Dates: start: 20120224
  2. RITUXIMAB [Suspect]
     Active Substance: RITUXIMAB
     Dosage: MAINTENANCE DOSE
     Route: 042
     Dates: start: 20120917
  3. DOXORUBICIN [Suspect]
     Active Substance: DOXORUBICIN
     Indication: MARGINAL ZONE LYMPHOMA
     Dosage: ON DAY-2 OF CYCLE 1 TO 6 (CYCLE: 21 DAYS)
     Route: 042
     Dates: start: 20120224
  4. ENDOXAN 1G [Suspect]
     Active Substance: CYCLOPHOSPHAMIDE
     Dosage: MOST RECENT DOSE PRIOR TO SAE
     Route: 042
     Dates: start: 20120612
  5. PREDNISOLONE. [Suspect]
     Active Substance: PREDNISOLONE
     Indication: MARGINAL ZONE LYMPHOMA
     Dosage: ONCE IN EVERY THREE WEEKS ON DAY 1 TO 5 OF CYCLE 1 TO 6 (21 DAY CYCLE)
     Route: 048
     Dates: start: 20120223
  6. DOXORUBICIN [Suspect]
     Active Substance: DOXORUBICIN
     Dosage: MOST RECENT DOSE PRIOR TO SAE
     Route: 042
     Dates: start: 20120612
  7. VINCRISTINE [Suspect]
     Active Substance: VINCRISTINE
     Indication: MARGINAL ZONE LYMPHOMA
     Dosage: IV PUSH, ON DAY 2 OF CYCLE 1 TO 6 (CYCLE: 21 DAYS))
     Route: 042
     Dates: start: 20120224
  8. VINCRISTINE [Suspect]
     Active Substance: VINCRISTINE
     Dosage: MOST RECENT DOSE PRIOR TO SAE
     Route: 042
     Dates: start: 20120612
  9. RITUXIMAB [Suspect]
     Active Substance: RITUXIMAB
     Indication: MARGINAL ZONE LYMPHOMA
     Dosage: INDUCTION THERAPY, ON DAY-1 OF CYCLE 1 TO 8 (CYCLE: 21DAYS)
     Route: 042
     Dates: start: 20120223, end: 20120723
  10. RITUXIMAB [Suspect]
     Active Substance: RITUXIMAB
     Dosage: MOST RECENT DOSE PRIOR TO SAE
     Route: 042
     Dates: start: 20140529, end: 20140529
  11. PREDNISOLONE. [Suspect]
     Active Substance: PREDNISOLONE
     Dosage: MOST RECENT DOSE PRIOR TO SAE
     Route: 048
     Dates: start: 20120615

REACTIONS (4)
  - Cholangiocarcinoma [Fatal]
  - Metastases to liver [Unknown]
  - Cholecystitis [Unknown]
  - Marginal zone lymphoma recurrent [Unknown]

NARRATIVE: CASE EVENT DATE: 201510
